FAERS Safety Report 9444853 (Version 1)
Quarter: 2013Q3

REPORT INFORMATION
  Report Type: Spontaneous
  Country: GB (occurrence: GB)
  Receive Date: 20130807
  Receipt Date: 20130807
  Transmission Date: 20140515
  Serious: Yes (Life-Threatening, Hospitalization, Disabling, Other)
  Sender: FDA-Public Use
  Company Number: GB-SANOFI-AVENTIS-2013SA075993

PATIENT
  Sex: Male
  Weight: 112.48 kg

DRUGS (5)
  1. OLANZAPINE [Suspect]
     Indication: PRODUCT USED FOR UNKNOWN INDICATION
     Route: 048
     Dates: start: 20020304, end: 20090110
  2. ZOLPIDEM [Suspect]
     Indication: INSOMNIA RELATED TO ANOTHER MENTAL CONDITION
     Route: 048
     Dates: start: 20061004, end: 20070504
  3. CITALOPRAM [Suspect]
     Indication: PRODUCT USED FOR UNKNOWN INDICATION
     Route: 048
     Dates: start: 20100508, end: 20100508
  4. NITRAZEPAM [Suspect]
     Indication: INSOMNIA RELATED TO ANOTHER MENTAL CONDITION
     Route: 048
     Dates: start: 20080708, end: 20080708
  5. MORPHINE [Concomitant]

REACTIONS (2)
  - Diabetes mellitus [Not Recovered/Not Resolved]
  - Urinary incontinence [Not Recovered/Not Resolved]
